FAERS Safety Report 26214587 (Version 1)
Quarter: 2025Q4

REPORT INFORMATION
  Report Type: Spontaneous
  Country: US (occurrence: US)
  Receive Date: 20251230
  Receipt Date: 20251230
  Transmission Date: 20260118
  Serious: Yes (Hospitalization)
  Sender: MYLAN
  Company Number: US-MYLANLABS-2025M1110406

PATIENT
  Age: 54 Year
  Sex: Female

DRUGS (3)
  1. PROPRANOLOL [Suspect]
     Active Substance: PROPRANOLOL HYDROCHLORIDE
     Indication: Thyrotoxic crisis
     Dosage: UNK
  2. DIGOXIN [Suspect]
     Active Substance: DIGOXIN
     Indication: Thyrotoxic crisis
     Dosage: UNK
  3. POTASSIUM IODIDE [Suspect]
     Active Substance: POTASSIUM IODIDE
     Indication: Thyrotoxic crisis
     Dosage: UNK

REACTIONS (1)
  - Drug ineffective [Unknown]
